FAERS Safety Report 24377995 (Version 1)
Quarter: 2024Q3

REPORT INFORMATION
  Report Type: Spontaneous
  Country: IT (occurrence: IT)
  Receive Date: 20240930
  Receipt Date: 20240930
  Transmission Date: 20241016
  Serious: Yes (Other)
  Sender: MYLAN
  Company Number: IT-MYLANLABS-2024M1086177

PATIENT
  Age: 48 Year
  Sex: Male

DRUGS (4)
  1. IMATINIB [Suspect]
     Active Substance: IMATINIB
     Indication: Advanced systemic mastocytosis
     Dosage: 100 MILLIGRAM, QD
     Route: 065
     Dates: start: 201609
  2. PEGINTERFERON ALFA-2B [Suspect]
     Active Substance: PEGINTERFERON ALFA-2B
     Indication: Advanced systemic mastocytosis
     Dosage: 135 MICROGRAM, QW
     Route: 065
  3. CLADRIBINE [Suspect]
     Active Substance: CLADRIBINE
     Indication: Advanced systemic mastocytosis
     Dosage: 0.14 MILLIGRAM/KILOGRAM, MONTHLY
     Route: 058
     Dates: end: 202006
  4. MIDOSTAURIN [Suspect]
     Active Substance: MIDOSTAURIN
     Indication: Advanced systemic mastocytosis
     Dosage: 200 MILLIGRAM, QD
     Route: 065

REACTIONS (3)
  - Drug ineffective [Unknown]
  - Gastrointestinal disorder [Unknown]
  - Drug intolerance [Unknown]
